FAERS Safety Report 17709353 (Version 2)
Quarter: 2025Q2

REPORT INFORMATION
  Report Type: Spontaneous
  Country: US (occurrence: US)
  Receive Date: 20200426
  Receipt Date: 20250624
  Transmission Date: 20250716
  Serious: Yes (Life-Threatening, Hospitalization, Other)
  Sender: AUROBINDO
  Company Number: US-MLMSERVICE-20200413-2256285-1

PATIENT
  Age: 4 Year
  Sex: Female

DRUGS (5)
  1. DEXAMETHASONE [Suspect]
     Active Substance: DEXAMETHASONE
     Indication: Brain oedema
     Dosage: 0.5 MILLIGRAM, TWO TIMES A DAY
     Route: 065
     Dates: start: 201802
  2. DEXAMETHASONE [Suspect]
     Active Substance: DEXAMETHASONE
     Indication: Headache
  3. TRAMETINIB [Suspect]
     Active Substance: TRAMETINIB
     Indication: Evidence based treatment
     Dosage: 1 MILLIGRAM, ONCE A DAY
     Route: 065
     Dates: start: 201802, end: 2018
  4. TRAMETINIB [Suspect]
     Active Substance: TRAMETINIB
     Dosage: 0.5 MILLIGRAM, ONCE A DAY
     Route: 065
  5. DABRAFENIB [Concomitant]
     Active Substance: DABRAFENIB
     Indication: Product used for unknown indication
     Route: 065

REACTIONS (4)
  - Pneumocephalus [Recovered/Resolved]
  - Wound dehiscence [Recovered/Resolved]
  - Skin toxicity [Recovered/Resolved]
  - Impaired healing [Recovered/Resolved]

NARRATIVE: CASE EVENT DATE: 20180301
